FAERS Safety Report 13267342 (Version 1)
Quarter: 2017Q1

REPORT INFORMATION
  Report Type: Spontaneous
  Country: US (occurrence: US)
  Receive Date: 20170223
  Receipt Date: 20170223
  Transmission Date: 20170428
  Serious: No
  Sender: FDA-Public Use
  Company Number: None

PATIENT
  Age: 70 Year
  Sex: Female

DRUGS (1)
  1. HUMIRA [Suspect]
     Active Substance: ADALIMUMAB
     Indication: PRODUCT USED FOR UNKNOWN INDICATION
     Dosage: 40MG EVERY 14 DAYS SUB-Q
     Route: 058
     Dates: start: 20160301, end: 20170206

REACTIONS (2)
  - Muscular weakness [None]
  - Hypotonia [None]

NARRATIVE: CASE EVENT DATE: 20170206
